FAERS Safety Report 9281125 (Version 1)
Quarter: 2013Q2

REPORT INFORMATION
  Report Type: Spontaneous
  Country: US (occurrence: None)
  Receive Date: 20130508
  Receipt Date: 20130508
  Transmission Date: 20140414
  Serious: No
  Sender: FDA-Public Use
  Company Number: None

PATIENT
  Age: 67 Year
  Sex: Male
  Weight: 82.3 kg

DRUGS (1)
  1. VENLAFAXINE [Suspect]
     Dosage: UD?
     Route: 048
     Dates: start: 20120717, end: 20121119

REACTIONS (2)
  - Malaise [None]
  - Fatigue [None]
